FAERS Safety Report 23142694 (Version 3)
Quarter: 2025Q4

REPORT INFORMATION
  Report Type: Spontaneous
  Country: US (occurrence: US)
  Receive Date: 20231103
  Receipt Date: 20251219
  Transmission Date: 20260118
  Serious: Yes (Hospitalization, Other)
  Sender: STRIDES
  Company Number: None

PATIENT
  Age: 16 Year
  Sex: Male

DRUGS (18)
  1. METHOTREXATE [Interacting]
     Active Substance: METHOTREXATE
     Indication: B-cell type acute leukaemia
     Dosage: UNK, CYCLICAL (STANDARD DOSES)
     Route: 065
  2. METHOTREXATE [Interacting]
     Active Substance: METHOTREXATE
     Indication: Ocular icterus
     Dosage: UNK, STANDARD DOSES
     Route: 065
  3. METHOTREXATE [Interacting]
     Active Substance: METHOTREXATE
     Indication: Hyperbilirubinaemia
  4. METHOTREXATE [Interacting]
     Active Substance: METHOTREXATE
     Indication: Hypertransaminasaemia
  5. ALLOPURINOL [Interacting]
     Active Substance: ALLOPURINOL
     Indication: B-cell type acute leukaemia
     Dosage: 100 MILLIGRAM, PER DAY, 50 MG/M2 ROUNDED TO THE NEAREST 25 MG
     Route: 065
  6. ALLOPURINOL [Interacting]
     Active Substance: ALLOPURINOL
     Dosage: UNK, FURTHER DOSE DECREASED TO 50%
     Route: 065
  7. MERCAPTOPURINE [Interacting]
     Active Substance: MERCAPTOPURINE
     Indication: Ocular icterus
     Dosage: UNK, CYCLICAL (STANDARD DOSES, 6-MP)
     Route: 065
  8. MERCAPTOPURINE [Interacting]
     Active Substance: MERCAPTOPURINE
     Indication: Hyperbilirubinaemia
     Dosage: 37.5 MILLIGRAM/SQ. METER, QD, REDUCED BY 50 %
     Route: 065
  9. MERCAPTOPURINE [Interacting]
     Active Substance: MERCAPTOPURINE
     Indication: Hypertransaminasaemia
     Dosage: UNK, STANDARD DOSES
     Route: 065
  10. MERCAPTOPURINE [Interacting]
     Active Substance: MERCAPTOPURINE
     Indication: B-cell type acute leukaemia
  11. PREDNISONE [Concomitant]
     Active Substance: PREDNISONE
     Indication: B-cell type acute leukaemia
     Dosage: UNK, CYCLICAL (STANDARD DOSES)
     Route: 065
  12. PREDNISONE [Concomitant]
     Active Substance: PREDNISONE
     Indication: Hyperbilirubinaemia
     Dosage: UNK, STANDARD DOSES
     Route: 065
  13. PREDNISONE [Concomitant]
     Active Substance: PREDNISONE
     Indication: Hypertransaminasaemia
  14. PREDNISONE [Concomitant]
     Active Substance: PREDNISONE
     Indication: Ocular icterus
  15. VINCRISTINE [Concomitant]
     Active Substance: VINCRISTINE
     Indication: Hyperbilirubinaemia
     Dosage: UNK, CYCLICAL (STANDARD DOSES)
     Route: 065
  16. VINCRISTINE [Concomitant]
     Active Substance: VINCRISTINE
     Indication: Hypertransaminasaemia
     Dosage: UNK, STANDARD DOSES
     Route: 065
  17. VINCRISTINE [Concomitant]
     Active Substance: VINCRISTINE
     Indication: Ocular icterus
  18. VINCRISTINE [Concomitant]
     Active Substance: VINCRISTINE
     Indication: B-cell type acute leukaemia

REACTIONS (3)
  - Drug interaction [Unknown]
  - Anaemia megaloblastic [Unknown]
  - Off label use [Unknown]
